FAERS Safety Report 9580650 (Version 1)
Quarter: 2013Q3

REPORT INFORMATION
  Report Type: Spontaneous
  Country: US (occurrence: None)
  Receive Date: 20130930
  Receipt Date: 20130930
  Transmission Date: 20140515
  Serious: No
  Sender: FDA-Public Use
  Company Number: 13AE018

PATIENT
  Age: 72 Year
  Sex: Female

DRUGS (7)
  1. EQUATE DOXYLAMINE SUCCINATE 25MG TABLETS [Suspect]
     Indication: SLEEP DISORDER
     Dosage: 1/MOUTH AS NEEDED
     Dates: start: 20130301, end: 20130924
  2. BISOPROLOL( BLOOD PRESSURE MEDICATION) [Concomitant]
  3. DIPHENHYDRAMINE [Concomitant]
  4. LEVOTHYROXINE ( THYROID MEDICATION) [Concomitant]
  5. ALPRAZOLAM ( ZANEX) [Concomitant]
  6. HYOMAX ( IBS MEDICATION) [Concomitant]
  7. VARIOUS VITAMINS [Concomitant]

REACTIONS (2)
  - Middle insomnia [None]
  - Hallucination, visual [None]
